FAERS Safety Report 13576786 (Version 2)
Quarter: 2017Q3

REPORT INFORMATION
  Report Type: Report from Study
  Country: CA (occurrence: CA)
  Receive Date: 20170524
  Receipt Date: 20170703
  Transmission Date: 20171127
  Serious: Yes (Other)
  Sender: FDA-Public Use
  Company Number: CA-AMGEN-CANSL2017076285

PATIENT
  Age: 61 Year
  Sex: Female
  Weight: 49.5 kg

DRUGS (22)
  1. ZOLMITRIPTAN. [Concomitant]
     Active Substance: ZOLMITRIPTAN
     Dosage: UNK
  2. ACETAMINOPHEN. [Concomitant]
     Active Substance: ACETAMINOPHEN
     Dosage: 500 MG(4-6 HOUR AS NEEDED)
     Dates: start: 20170427
  3. VAGIFEM [Concomitant]
     Active Substance: ESTRADIOL
     Dosage: 10 MUG, UNK
     Dates: start: 20170518
  4. AVAMYS [Concomitant]
     Active Substance: FLUTICASONE FUROATE
     Dosage: 27.5 MUG, UNK
     Dates: start: 20170518
  5. DOMPERIDONE [Concomitant]
     Active Substance: DOMPERIDONE
     Dosage: 10 MG, BID(AS NEEDED)
     Dates: start: 20170518
  6. PERIOGARD [Concomitant]
     Active Substance: CHLORHEXIDINE GLUCONATE
     Dosage: 0.12 %, (2X PER DAY FOR 30 SECONDS)
     Dates: start: 20170610
  7. PROLIA [Suspect]
     Active Substance: DENOSUMAB
     Indication: OSTEOPOROSIS POSTMENOPAUSAL
     Dosage: 60 MG, Q6MO
     Route: 058
     Dates: start: 20141031
  8. PANTOPRAZOLE [Concomitant]
     Active Substance: PANTOPRAZOLE
     Dosage: UNK
  9. ZOPICLONE [Concomitant]
     Active Substance: ZOPICLONE
     Dosage: 5 MG, UNK
     Dates: start: 20170518
  10. PREVACID [Concomitant]
     Active Substance: LANSOPRAZOLE
     Dosage: 30 MG, UNK
     Dates: start: 20170518
  11. ZOLMITRIPTAN ODT [Concomitant]
     Dosage: 2.5 MG, UNK
     Dates: start: 20170518
  12. LOVENOX [Concomitant]
     Active Substance: ENOXAPARIN SODIUM
     Dosage: 80 MG,(08ML) UNK
     Route: 058
     Dates: start: 20170518
  13. CIPRODEX [Concomitant]
     Active Substance: CIPROFLOXACIN HYDROCHLORIDE\DEXAMETHASONE
     Dosage: 4 GTT, (2 X PER DAY IN THE)
     Dates: start: 20170614
  14. TRAMACETA [Concomitant]
     Dosage: UNK(37.5+325 MG)
     Dates: start: 20170518
  15. CETIRIZINE [Concomitant]
     Active Substance: CETIRIZINE HYDROCHLORIDE
     Dosage: 10 MG, (AS NEEDED)
  16. VITAMIN D [Concomitant]
     Active Substance: CHOLECALCIFEROL
     Dosage: 10000 UNIT, QWK
     Dates: start: 20170518
  17. LOTRIDERM [Concomitant]
     Active Substance: BETAMETHASONE DIPROPIONATE\CLOTRIMAZOLE
     Dosage: UNK(1+0.05%)(AS NEEDED)
     Dates: start: 20170518, end: 20170602
  18. SYMBICORT [Concomitant]
     Active Substance: BUDESONIDE\FORMOTEROL FUMARATE DIHYDRATE
     Dosage: UNK(6+200MCG)
     Dates: start: 20170518, end: 20170610
  19. BRICANYL [Concomitant]
     Active Substance: TERBUTALINE SULFATE
     Dosage: 0.5 MG, QID (AS NEEDED)
     Dates: start: 20170518
  20. LANSOPRAZOLE. [Concomitant]
     Active Substance: LANSOPRAZOLE
     Dosage: 30 MG, QD
     Dates: start: 20170518
  21. FLUCONAZOLE. [Concomitant]
     Active Substance: FLUCONAZOLE
     Dosage: 150 MG, (AS NEEDE)
     Dates: start: 20170518
  22. SODIUM CHLORIDE. [Concomitant]
     Active Substance: SODIUM CHLORIDE
     Dosage: 1000 MG, (2 TIMES A DAY)
     Dates: start: 20170425, end: 20170622

REACTIONS (4)
  - Radius fracture [Unknown]
  - Bone lesion [Not Recovered/Not Resolved]
  - Vena cava thrombosis [Not Recovered/Not Resolved]
  - Hyponatraemia [Not Recovered/Not Resolved]

NARRATIVE: CASE EVENT DATE: 2014
